FAERS Safety Report 23071255 (Version 1)
Quarter: 2023Q4

REPORT INFORMATION
  Report Type: Report from Study
  Country: US (occurrence: US)
  Receive Date: 20231016
  Receipt Date: 20231016
  Transmission Date: 20240109
  Serious: Yes (Other)
  Sender: FDA-Public Use
  Company Number: US-ABBVIE-5451341

PATIENT
  Sex: Male

DRUGS (1)
  1. HUMIRA [Suspect]
     Active Substance: ADALIMUMAB
     Indication: Crohn^s disease
     Dosage: HUMIRA  CITRATE FREE PEN, FORM STRENGTH: 40 MILLIGRAM
     Route: 058

REACTIONS (2)
  - Myocardial infarction [Recovering/Resolving]
  - Epistaxis [Recovering/Resolving]
